FAERS Safety Report 17043391 (Version 1)
Quarter: 2019Q4

REPORT INFORMATION
  Report Type: Spontaneous
  Country: US (occurrence: US)
  Receive Date: 20191118
  Receipt Date: 20191118
  Transmission Date: 20200122
  Serious: No
  Sender: FDA-Public Use
  Company Number: US-TARO-2019TAR00158

PATIENT
  Sex: Female

DRUGS (1)
  1. TRIAMCINOLONE ACETONIDE DENTAL PASTE USP 0.1% [Suspect]
     Active Substance: TRIAMCINOLONE ACETONIDE
     Indication: THERMAL BURN
     Dosage: UNK, 2X/DAY
     Route: 061

REACTIONS (2)
  - Productive cough [Recovered/Resolved]
  - Pharyngeal paraesthesia [Recovered/Resolved]
